FAERS Safety Report 9740655 (Version 1)
Quarter: 2013Q4

REPORT INFORMATION
  Report Type: Spontaneous
  Country: US (occurrence: US)
  Receive Date: 20131209
  Receipt Date: 20131209
  Transmission Date: 20140711
  Serious: No
  Sender: FDA-Public Use
  Company Number: US-BIOGENIDEC-2013BI092904

PATIENT
  Age: 61 Year
  Sex: Female
  Weight: 62 kg

DRUGS (7)
  1. TECFIDERA [Suspect]
     Indication: PRODUCT USED FOR UNKNOWN INDICATION
     Route: 048
  2. TECFIDERA [Suspect]
     Indication: PRODUCT USED FOR UNKNOWN INDICATION
     Route: 048
  3. VITAMIN D3 [Concomitant]
  4. CALCIUM 500 [Concomitant]
  5. VITAMIN B12 [Concomitant]
  6. VITAMIN B6 [Concomitant]
  7. PSYLLIUM [Concomitant]

REACTIONS (4)
  - Constipation [Unknown]
  - Hot flush [Unknown]
  - Abdominal pain [Unknown]
  - Flushing [Unknown]
